FAERS Safety Report 9160145 (Version 2)
Quarter: 2013Q1

REPORT INFORMATION
  Report Type: Spontaneous
  Country: CH (occurrence: CH)
  Receive Date: 20130313
  Receipt Date: 20130320
  Transmission Date: 20140127
  Serious: Yes (Hospitalization, Other)
  Sender: FDA-Public Use
  Company Number: DE-PFIZER INC-2013080415

PATIENT
  Age: 25 Year
  Sex: Female

DRUGS (2)
  1. HYDANTAL [Suspect]
     Indication: GRAND MAL CONVULSION
     Dosage: 1 DF, 2X/DAY
     Dates: start: 1955
  2. LARGACTIL [Concomitant]
     Indication: AGITATION

REACTIONS (1)
  - Myasthenic syndrome [Recovered/Resolved]
